FAERS Safety Report 7301690-6 (Version None)
Quarter: 2011Q1

REPORT INFORMATION
  Report Type: 
  Country: None (occurrence: None)
  Receive Date: 20110218
  Receipt Date: 20110208
  Transmission Date: 20110831
  Serious: Yes (Life-Threatening, Other)
  Sender: FDA-Public Use
  Company Number: TR-SANOFI-AVENTIS-2011SA008251

PATIENT
  Age: 40 Year
  Sex: Female
  Weight: 75 kg

DRUGS (1)
  1. KETEK [Suspect]
     Indication: BRONCHITIS
     Route: 048
     Dates: start: 20110204, end: 20110204

REACTIONS (8)
  - CONFUSIONAL STATE [None]
  - ANGIOEDEMA [None]
  - TRICUSPID VALVE INCOMPETENCE [None]
  - TACHYCARDIA [None]
  - HEADACHE [None]
  - DYSPNOEA [None]
  - PERICARDIAL EFFUSION [None]
  - SWOLLEN TONGUE [None]
